FAERS Safety Report 9871920 (Version 1)
Quarter: 2014Q1

REPORT INFORMATION
  Report Type: Spontaneous
  Country: US (occurrence: US)
  Receive Date: 20140205
  Receipt Date: 20140205
  Transmission Date: 20141002
  Serious: No
  Sender: FDA-Public Use
  Company Number: US-ALLERGAN-1305442US

PATIENT
  Age: 27 Year
  Sex: Female

DRUGS (4)
  1. BOTOX [Suspect]
     Indication: HYPERHIDROSIS
     Dosage: 100 UNITS, SINGLE
     Dates: start: 20121218, end: 20121218
  2. BOTOX [Suspect]
     Dosage: 100 UNITS, SINGLE
     Dates: start: 201206, end: 201206
  3. LOESTRIN [Concomitant]
     Indication: ORAL CONTRACEPTION
     Dosage: UNK
     Dates: start: 2008
  4. DRYSOL [Concomitant]
     Indication: HYPERHIDROSIS

REACTIONS (4)
  - Fluid retention [Not Recovered/Not Resolved]
  - Weight increased [Not Recovered/Not Resolved]
  - Local swelling [Unknown]
  - Wrong technique in drug usage process [Unknown]
